FAERS Safety Report 24062065 (Version 2)
Quarter: 2024Q3

REPORT INFORMATION
  Report Type: Spontaneous
  Country: US (occurrence: US)
  Receive Date: 20240708
  Receipt Date: 20240907
  Transmission Date: 20241016
  Serious: Yes (Other)
  Sender: AMGEN
  Company Number: US-AMGEN-USASP2024132417

PATIENT

DRUGS (9)
  1. PREDNISONE [Suspect]
     Active Substance: PREDNISONE
     Indication: Diffuse large B-cell lymphoma
     Dosage: UNK
     Route: 065
  2. RITUXIMAB [Suspect]
     Active Substance: RITUXIMAB
     Indication: Diffuse large B-cell lymphoma
     Dosage: UNK
     Route: 065
  3. CYCLOPHOSPHAMIDE [Concomitant]
     Active Substance: CYCLOPHOSPHAMIDE
     Indication: Diffuse large B-cell lymphoma
     Dosage: UNK
     Route: 065
  4. DOXORUBICIN [Concomitant]
     Active Substance: DOXORUBICIN
     Indication: Diffuse large B-cell lymphoma
     Dosage: UNK
  5. VINCRISTINE [Concomitant]
     Active Substance: VINCRISTINE
     Indication: Diffuse large B-cell lymphoma
     Dosage: UNK
  6. GOLCADOMIDE [Concomitant]
     Active Substance: GOLCADOMIDE
     Indication: Diffuse large B-cell lymphoma
     Dosage: 0.2 MILLIGRAM,0.2 MG DL-7 (DL-1)
     Route: 065
  7. GOLCADOMIDE [Concomitant]
     Active Substance: GOLCADOMIDE
     Dosage: 0.4 MILLIGRAM, DL-7 (DI-1)
  8. GOLCADOMIDE [Concomitant]
     Active Substance: GOLCADOMIDE
     Dosage: 0.4 MILLIGRAM,DL-10 (DI-2)
  9. GOLCADOMIDE [Concomitant]
     Active Substance: GOLCADOMIDE
     Dosage: UNK
     Route: 065

REACTIONS (11)
  - Thrombocytopenia [Unknown]
  - Neutropenia [Unknown]
  - Adverse event [Unknown]
  - Febrile neutropenia [Unknown]
  - Infection [Unknown]
  - Infestation [Unknown]
  - Anaemia [Unknown]
  - Deep vein thrombosis [Unknown]
  - Pulmonary embolism [Unknown]
  - Thrombosis [Unknown]
  - Lymphopenia [Unknown]
